FAERS Safety Report 15989179 (Version 1)
Quarter: 2019Q1

REPORT INFORMATION
  Report Type: Spontaneous
  Country: US (occurrence: US)
  Receive Date: 20190220
  Receipt Date: 20190220
  Transmission Date: 20190418
  Serious: No
  Sender: FDA-Public Use
  Company Number: None

PATIENT
  Sex: Male

DRUGS (2)
  1. KEPPRA [Suspect]
     Active Substance: LEVETIRACETAM
  2. TEGRETOL [Suspect]
     Active Substance: CARBAMAZEPINE

REACTIONS (5)
  - Seizure [None]
  - Abnormal behaviour [None]
  - Mood swings [None]
  - Dizziness [None]
  - Impaired work ability [None]
